FAERS Safety Report 21800326 (Version 1)
Quarter: 2022Q4

REPORT INFORMATION
  Report Type: Spontaneous
  Country: US (occurrence: None)
  Receive Date: 20221229
  Receipt Date: 20221229
  Transmission Date: 20230112
  Serious: Yes (Life-Threatening)
  Sender: FDA-Public Use
  Company Number: None

PATIENT

DRUGS (1)
  1. CEFAZOLIN [Suspect]
     Active Substance: CEFAZOLIN

REACTIONS (4)
  - Bronchospasm [None]
  - Flushing [None]
  - Urticaria [None]
  - Tachycardia [None]

NARRATIVE: CASE EVENT DATE: 20220925
